FAERS Safety Report 15730724 (Version 1)
Quarter: 2018Q4

REPORT INFORMATION
  Report Type: Spontaneous
  Country: US (occurrence: US)
  Receive Date: 20181217
  Receipt Date: 20181217
  Transmission Date: 20190205
  Serious: No
  Sender: FDA-Public Use
  Company Number: US-SA-2018SA341279

PATIENT
  Sex: Male

DRUGS (5)
  1. PRALUENT [Suspect]
     Active Substance: ALIROCUMAB
     Indication: PERIPHERAL VASCULAR DISORDER
  2. PRALUENT [Suspect]
     Active Substance: ALIROCUMAB
     Indication: LIPOPROTEIN (A) INCREASED
  3. PRALUENT [Suspect]
     Active Substance: ALIROCUMAB
     Indication: MYOCARDIAL ISCHAEMIA
  4. PRALUENT [Suspect]
     Active Substance: ALIROCUMAB
     Indication: HYPERLIPIDAEMIA
     Dosage: 75 MG, QOW
     Route: 058
  5. PRALUENT [Suspect]
     Active Substance: ALIROCUMAB
     Indication: ARTERIOSCLEROSIS

REACTIONS (1)
  - Blood cholesterol increased [Unknown]
